FAERS Safety Report 10261877 (Version 3)
Quarter: 2015Q2

REPORT INFORMATION
  Report Type: Spontaneous
  Country: PT (occurrence: PT)
  Receive Date: 20140626
  Receipt Date: 20150430
  Transmission Date: 20150821
  Serious: Yes (Hospitalization)
  Sender: FDA-Public Use
  Company Number: PT-TEVA-490035ISR

PATIENT
  Age: 68 Year
  Sex: Female

DRUGS (21)
  1. CHLORDIAZEPOXIDE [Suspect]
     Active Substance: CHLORDIAZEPOXIDE
     Dosage: 5 MILLIGRAM DAILY;
     Route: 065
  2. BETAHISTINE [Suspect]
     Active Substance: BETAHISTINE
     Route: 065
  3. PAROXETINE [Interacting]
     Active Substance: PAROXETINE\PAROXETINE HYDROCHLORIDE
     Dosage: 90 MILLIGRAM DAILY;
     Route: 065
  4. ALFUZOSIN [Suspect]
     Active Substance: ALFUZOSIN
     Dosage: 5 MILLIGRAM DAILY;
     Route: 065
  5. GLUCOSAMINE [Suspect]
     Active Substance: GLUCOSAMINE
     Dosage: 1500 MILLIGRAM DAILY;
     Route: 065
  6. CLIDINIUM BROMIDE [Suspect]
     Active Substance: CLIDINIUM BROMIDE
     Route: 065
  7. TRIMETAZIDINE [Suspect]
     Active Substance: TRIMETAZIDINE
     Dosage: 20 MILLIGRAM DAILY;
     Route: 065
  8. DEFLAZACORT [Suspect]
     Active Substance: DEFLAZACORT
     Route: 065
  9. ETORICOXIB [Suspect]
     Active Substance: ETORICOXIB
     Dosage: 90 MILLIGRAM DAILY;
     Route: 065
  10. OMEPRAZOLE. [Suspect]
     Active Substance: OMEPRAZOLE
     Dosage: 20 MILLIGRAM DAILY;
     Route: 065
  11. OTILONIUM BROMIDE [Suspect]
     Active Substance: OTILONIUM BROMIDE
     Dosage: 40 MILLIGRAM DAILY;
     Route: 065
  12. CELECOXIB. [Suspect]
     Active Substance: CELECOXIB
     Dosage: 200 MILLIGRAM DAILY;
     Route: 065
  13. TRIHEXYPHENIDYL [Suspect]
     Active Substance: TRIHEXYPHENIDYL
     Dosage: 4 MILLIGRAM DAILY;
     Route: 065
  14. SIMVASTATIN. [Suspect]
     Active Substance: SIMVASTATIN
     Dosage: 40 MILLIGRAM DAILY;
     Route: 065
  15. ALPRAZOLAM. [Interacting]
     Active Substance: ALPRAZOLAM
     Dosage: 1 MILLIGRAM DAILY;
     Route: 065
  16. TRAZODONE [Interacting]
     Active Substance: TRAZODONE HYDROCHLORIDE
     Dosage: 150 MILLIGRAM DAILY;
     Route: 065
  17. PROPRANOLOL [Suspect]
     Active Substance: PROPRANOLOL\PROPRANOLOL HYDROCHLORIDE
     Dosage: 40 MILLIGRAM DAILY;
     Route: 065
  18. CITICOLINE [Suspect]
     Active Substance: CITICOLINE
     Dosage: 600 MILLIGRAM DAILY;
     Route: 065
  19. TRAZODONE [Interacting]
     Active Substance: TRAZODONE HYDROCHLORIDE
     Dosage: 20 MILLIGRAM DAILY;
  20. ALFUZOSIN [Suspect]
     Active Substance: ALFUZOSIN
     Dosage: 100 MILLIGRAM DAILY;
  21. ACECLOFENAC [Suspect]
     Active Substance: ACECLOFENAC
     Route: 065

REACTIONS (8)
  - Disorientation [Unknown]
  - Cognitive disorder [Recovering/Resolving]
  - Myoclonus [Recovered/Resolved]
  - Gait disturbance [Recovered/Resolved]
  - Disturbance in attention [Recovered/Resolved]
  - Apraxia [Recovered/Resolved]
  - Drug interaction [Recovering/Resolving]
  - Hyperreflexia [Recovering/Resolving]
